FAERS Safety Report 19322571 (Version 1)
Quarter: 2021Q2

REPORT INFORMATION
  Report Type: Spontaneous
  Country: US (occurrence: US)
  Receive Date: 20210527
  Receipt Date: 20210527
  Transmission Date: 20210717
  Serious: No
  Sender: FDA-Public Use
  Company Number: US-EVOLUS, INC.-2021EV000084

PATIENT
  Sex: Female

DRUGS (2)
  1. JEUVEAU [Suspect]
     Active Substance: PRABOTULINUMTOXINA-XVFS
     Indication: SKIN WRINKLING
     Dosage: 10 UNITS IN THE FOREHEAD, 20 UNITS IN THE GLABELLA AND 12 UNITS IN THE LATERAL CANTHUS
     Dates: start: 20210106
  2. JEUVEAU [Suspect]
     Active Substance: PRABOTULINUMTOXINA-XVFS
     Indication: PRODUCT USED FOR UNKNOWN INDICATION
     Dosage: 10 UNITS IN THE FOREHEAD, 20 UNITS IN THE GLABELLA AND 12 UNITS IN THE LATERAL CANTHUS
     Dates: start: 20210120

REACTIONS (1)
  - Drug ineffective [Unknown]
